FAERS Safety Report 4813953-4 (Version None)
Quarter: 2005Q4

REPORT INFORMATION
  Report Type: 
  Country: None (occurrence: None)
  Receive Date: 20051028
  Receipt Date: 20041105
  Transmission Date: 20060501
  Serious: No
  Sender: FDA-Public Use
  Company Number: US-GLAXOSMITHKLINE-A0532854A

PATIENT
  Age: 73 Year
  Sex: Female

DRUGS (6)
  1. SEREVENT [Suspect]
     Indication: ASTHMA
     Dosage: 1PUFF TWICE PER DAY
     Route: 055
  2. TOPROL-XL [Concomitant]
  3. ALLEGRA [Concomitant]
  4. LIPITOR [Concomitant]
  5. NAPROXEN [Concomitant]
  6. ACIPHEX [Concomitant]

REACTIONS (3)
  - DRUG INEFFECTIVE [None]
  - PHARMACEUTICAL PRODUCT COMPLAINT [None]
  - RESPIRATORY TRACT INFECTION [None]
